FAERS Safety Report 23769679 (Version 1)
Quarter: 2024Q2

REPORT INFORMATION
  Report Type: Spontaneous
  Country: US (occurrence: None)
  Receive Date: 20240420
  Receipt Date: 20240420
  Transmission Date: 20240716
  Serious: Yes (Life-Threatening, Hospitalization, Disabling)
  Sender: FDA-Public Use
  Company Number: None

PATIENT
  Age: 61 Year
  Sex: Female
  Weight: 74.25 kg

DRUGS (5)
  1. SEMAGLUTIDE [Suspect]
     Active Substance: SEMAGLUTIDE
     Indication: Weight decreased
     Dosage: OTHER FREQUENCY : 1X WEEK?OTHER ROUTE : INJECTION?
     Route: 050
     Dates: start: 20240208, end: 20240402
  2. ELAVIL [Concomitant]
     Active Substance: AMITRIPTYLINE HYDROCHLORIDE
  3. ADVIL [Concomitant]
     Active Substance: IBUPROFEN
  4. DEXILANT [Concomitant]
     Active Substance: DEXLANSOPRAZOLE
  5. PROGESTERONE [Concomitant]
     Active Substance: PROGESTERONE

REACTIONS (4)
  - Diarrhoea [None]
  - Vomiting [None]
  - Blood potassium decreased [None]
  - Blood magnesium decreased [None]

NARRATIVE: CASE EVENT DATE: 20240414
